FAERS Safety Report 17512265 (Version 2)
Quarter: 2020Q1

REPORT INFORMATION
  Report Type: Report from Study
  Country: CZ (occurrence: CZ)
  Receive Date: 20200308
  Receipt Date: 20200319
  Transmission Date: 20200409
  Serious: Yes (Hospitalization)
  Sender: FDA-Public Use
  Company Number: NVSC2020CZ038036

PATIENT
  Age: 81 Year
  Sex: Female
  Weight: 68 kg

DRUGS (29)
  1. FAMOTIDINUM [Concomitant]
     Indication: PREMEDICATION
     Dosage: UNK
     Route: 065
     Dates: start: 20200128, end: 20200128
  2. NADROPARINUM CALCICUM [Concomitant]
     Indication: PULMONARY EMBOLISM
     Dosage: UNK
     Route: 065
     Dates: start: 20200224
  3. OMEPRAZOLUM [Concomitant]
     Indication: PROPHYLAXIS
     Dosage: UNK
     Route: 065
     Dates: start: 20200212
  4. ATORVASTATINUM [Concomitant]
     Indication: PROPHYLAXIS
     Dosage: UNK
     Route: 065
     Dates: start: 20130301, end: 20200211
  5. METOCLOPRAMIDE. [Concomitant]
     Active Substance: METOCLOPRAMIDE
     Indication: PREMEDICATION
     Dosage: UNK
     Route: 065
     Dates: start: 20200128, end: 20200130
  6. RINGERFUNDIN [Concomitant]
     Dosage: UNK
     Route: 065
     Dates: start: 20200217, end: 20200217
  7. AMOXICILLINUM TRIHYDRICUM [Concomitant]
     Indication: BRONCHITIS
     Dosage: UNK
     Route: 065
     Dates: start: 20200116, end: 20200127
  8. DEXAMETHASONUM [Concomitant]
     Active Substance: DEXAMETHASONE
     Indication: PREMEDICATION
     Dosage: UNK
     Route: 065
     Dates: start: 20200127, end: 20200129
  9. METOPROLOL TARTRAS [Concomitant]
     Active Substance: METOPROLOL TARTRATE
     Indication: HYPERTENSION
     Dosage: UNK
     Route: 065
     Dates: start: 20130301, end: 20200213
  10. METOPROLOL TARTRAS [Concomitant]
     Active Substance: METOPROLOL TARTRATE
     Indication: SUPRAVENTRICULAR TACHYCARDIA
     Dosage: UNK
     Route: 065
     Dates: start: 20200216
  11. AMOXICILLINUM TRIHYDRICUM [Concomitant]
     Indication: NEUTROPENIA
     Dosage: UNK
     Route: 065
     Dates: start: 20200207, end: 20200210
  12. AMOXICILLINUM TRIHYDRICUM [Concomitant]
     Indication: BODY TEMPERATURE ABNORMAL
  13. BISULEPIN HYDROCHLORIDE [Concomitant]
     Active Substance: BISULEPIN HYDROCHLORIDE
     Indication: PREMEDICATION
     Dosage: UNK
     Route: 065
     Dates: start: 20200127, end: 20200128
  14. HYLAK FORTE [Concomitant]
     Indication: PROPHYLAXIS
     Dosage: UNK
     Route: 065
     Dates: start: 20200211, end: 20200220
  15. ONDANSETRONUM [Concomitant]
     Active Substance: ONDANSETRON
     Indication: PREMEDICATION
     Dosage: UNK
     Route: 065
     Dates: start: 20200128, end: 20200128
  16. PYRIDOXINI HYDROCHLORIDUM [Concomitant]
     Indication: PROPHYLAXIS
     Dosage: UNK
     Route: 065
     Dates: start: 20200211, end: 20200211
  17. PLACEBO [Suspect]
     Active Substance: UNSPECIFIED INGREDIENT
     Indication: NON-SMALL CELL LUNG CANCER
     Dosage: CODE NOT BROKEN
     Route: 058
     Dates: start: 20200106, end: 20200128
  18. CLONAZEPAMUM [Concomitant]
     Indication: PROPHYLAXIS
     Dosage: UNK
     Route: 065
     Dates: start: 20151001
  19. RINGERFUNDIN [Concomitant]
     Indication: FLUID REPLACEMENT
     Dosage: UNK
     Route: 065
     Dates: start: 20200213, end: 20200215
  20. HYDROCHLOROTHIAZIDUM [Concomitant]
     Indication: HYPERTENSION
     Dosage: UNK
     Route: 065
     Dates: start: 20130301, end: 20200211
  21. HYLAK [Concomitant]
     Indication: PROPHYLAXIS
     Dosage: UNK
     Route: 065
     Dates: start: 20200301, end: 20200302
  22. RINGERS SOLUTION [Concomitant]
     Active Substance: CALCIUM CHLORIDE\POTASSIUM CHLORIDE\SODIUM CHLORIDE
     Indication: HYPONATRAEMIA
     Dosage: UNK
     Route: 065
     Dates: start: 20200211, end: 20200211
  23. HEPARINOIDUM [Concomitant]
     Indication: ERYTHEMA
     Dosage: UNK
     Route: 065
     Dates: start: 20200219, end: 20200223
  24. INDAPAMIDUM [Concomitant]
     Indication: HYPERTENSION
     Dosage: UNK
     Route: 065
     Dates: start: 20200221
  25. PYRIDOXINI HYDROCHLORIDUM [Concomitant]
     Indication: NEUTROPENIA
     Dosage: UNK
     Route: 065
     Dates: start: 20200116, end: 20200127
  26. RAMIPRILUM [Concomitant]
     Indication: HYPERTENSION
     Dosage: UNK
     Route: 065
     Dates: start: 20131001
  27. DOCETAXEL. [Suspect]
     Active Substance: DOCETAXEL
     Indication: NON-SMALL CELL LUNG CANCER
     Dosage: 75 MG/M2, QD
     Route: 042
     Dates: start: 20200106, end: 20200128
  28. LACTULOSUM [Concomitant]
     Indication: CONSTIPATION
     Dosage: UNK
     Route: 065
     Dates: start: 20200303, end: 20200303
  29. TRAMADOLI HYDROCHLORIDUM [Concomitant]
     Indication: CHEST PAIN
     Dosage: UNK
     Route: 065
     Dates: start: 20200229, end: 20200229

REACTIONS (6)
  - Pneumonia [Recovered/Resolved]
  - Pneumonitis [Recovered/Resolved]
  - Diarrhoea [Not Recovered/Not Resolved]
  - Pneumonia [Recovered/Resolved]
  - Pneumonitis [Not Recovered/Not Resolved]
  - Decreased appetite [Not Recovered/Not Resolved]

NARRATIVE: CASE EVENT DATE: 20200211
